FAERS Safety Report 26133368 (Version 1)
Quarter: 2025Q4

REPORT INFORMATION
  Report Type: Report from Study
  Country: CA (occurrence: CA)
  Receive Date: 20251209
  Receipt Date: 20251209
  Transmission Date: 20260118
  Serious: Yes (Other)
  Sender: BIOCON
  Company Number: CA-BIOCON BIOLOGICS LIMITED-BBL2025006747

PATIENT

DRUGS (1)
  1. BEVACIZUMAB [Suspect]
     Active Substance: BEVACIZUMAB
     Indication: Eye haemorrhage
     Dosage: UNK
     Route: 065

REACTIONS (6)
  - Swelling [Unknown]
  - Glaucoma [Unknown]
  - Vision blurred [Unknown]
  - Thrombosis [Unknown]
  - Off label use [Unknown]
  - Drug ineffective for unapproved indication [Unknown]
